FAERS Safety Report 4821989-2 (Version None)
Quarter: 2005Q4

REPORT INFORMATION
  Report Type: 
  Country: None (occurrence: None)
  Receive Date: 20051103
  Receipt Date: 20051026
  Transmission Date: 20060501
  Serious: No
  Sender: FDA-Public Use
  Company Number: 2005BI017358

PATIENT
  Age: 43 Year
  Sex: Female

DRUGS (1)
  1. AVONEX [Suspect]
     Indication: MULTIPLE SCLEROSIS
     Dosage: 30 UG QW IM
     Route: 030
     Dates: start: 20050213

REACTIONS (6)
  - CHEST PAIN [None]
  - DRUG DOSE OMISSION [None]
  - FEELING HOT AND COLD [None]
  - HOT FLUSH [None]
  - PAIN [None]
  - TREMOR [None]
